FAERS Safety Report 7360350-6 (Version None)
Quarter: 2011Q1

REPORT INFORMATION
  Report Type: 
  Country: None (occurrence: None)
  Receive Date: 20110318
  Receipt Date: 20110309
  Transmission Date: 20110831
  Serious: Yes (Other)
  Sender: FDA-Public Use
  Company Number: US-JNJFOC-20110304677

PATIENT
  Sex: Female
  Weight: 70.76 kg

DRUGS (10)
  1. SENOKOT [Concomitant]
     Indication: CONSTIPATION
     Route: 048
  2. COLACE [Concomitant]
     Indication: CONSTIPATION
     Route: 048
  3. DURAGESIC-50 [Suspect]
     Indication: PAIN
     Dosage: 100 UG/HR+50 UG/HR
     Route: 062
  4. FENTANYL-100 [Suspect]
     Indication: PAIN
     Dosage: 150 UG/HR= (UNSPECIFIED UG/HR+UNSPECIFIED UG/HR)
     Route: 062
  5. DURAGESIC-50 [Suspect]
     Dosage: 100 UG/HR+50 UG/HR
     Route: 062
  6. ELAVIL [Concomitant]
     Indication: DEPRESSION
     Route: 048
  7. REGLAN [Concomitant]
     Indication: GASTRIC DISORDER
     Route: 048
  8. DURAGESIC-50 [Suspect]
     Route: 062
  9. REGLAN [Concomitant]
     Indication: NAUSEA
     Route: 048
  10. TOPAMAX [Concomitant]
     Indication: NERVOUSNESS
     Route: 048

REACTIONS (4)
  - ABNORMAL LOSS OF WEIGHT [None]
  - BLINDNESS [None]
  - MALAISE [None]
  - VISUAL IMPAIRMENT [None]
